FAERS Safety Report 21813249 (Version 1)
Quarter: 2023Q1

REPORT INFORMATION
  Report Type: Spontaneous
  Country: CA (occurrence: CA)
  Receive Date: 20230103
  Receipt Date: 20230103
  Transmission Date: 20230417
  Serious: Yes (Life-Threatening, Hospitalization, Other)
  Sender: FDA-Public Use
  Company Number: CA-TEVA-2022-CA-2842480

PATIENT

DRUGS (1)
  1. PREDNISOLONE [Suspect]
     Active Substance: PREDNISOLONE
     Indication: Infantile spasms
     Dosage: 4 MG/KG DAILY;
     Route: 048

REACTIONS (4)
  - Adrenocortical insufficiency acute [Unknown]
  - Altered state of consciousness [Unknown]
  - Hypotension [Unknown]
  - Vomiting [Unknown]
